FAERS Safety Report 24599646 (Version 4)
Quarter: 2025Q3

REPORT INFORMATION
  Report Type: Spontaneous
  Country: US (occurrence: US)
  Receive Date: 20241110
  Receipt Date: 20250711
  Transmission Date: 20251021
  Serious: No
  Sender: SANOFI AVENTIS
  Company Number: US-SA-2024SA318640

PATIENT
  Age: 44 Year
  Sex: Female

DRUGS (3)
  1. DUPIXENT [Suspect]
     Active Substance: DUPILUMAB
     Indication: Neurodermatitis
     Dosage: 300 MG, QOW
     Route: 058
  2. DUPIXENT [Suspect]
     Active Substance: DUPILUMAB
     Dosage: 300 MG, QW
     Route: 058
  3. TYMLOS [Concomitant]
     Active Substance: ABALOPARATIDE
     Dosage: 80MCG QD

REACTIONS (4)
  - Vulvovaginal pruritus [Unknown]
  - Pruritus [Unknown]
  - Injection site pain [Recovered/Resolved]
  - Off label use [Unknown]
